FAERS Safety Report 18682383 (Version 1)
Quarter: 2020Q4

REPORT INFORMATION
  Report Type: Spontaneous
  Country: US (occurrence: US)
  Receive Date: 20201229
  Receipt Date: 20201229
  Transmission Date: 20210114
  Serious: Yes (Hospitalization)
  Sender: FDA-Public Use
  Company Number: None

PATIENT
  Sex: Male

DRUGS (4)
  1. NUCALA [Suspect]
     Active Substance: MEPOLIZUMAB
     Indication: ASTHMA
     Dosage: ?          OTHER FREQUENCY:EVERY 4 WEEKS;?
     Route: 058
     Dates: start: 20190910
  2. ALBUTEROL, PREGABALIN, METFORMIN, NEXLIZET, BUSPIRONE [Concomitant]
  3. MORPHINE SULFATE, DOXYCYCLINE HYCLATE, FLUTICASONE, MONTELUKAST [Concomitant]
  4. CYCLOBENZAPRINE, DEXAMETHASONE, LEVOCETIRIZINE, HYDROCODONE [Concomitant]

REACTIONS (1)
  - COVID-19 [None]
